FAERS Safety Report 10382340 (Version 8)
Quarter: 2016Q2

REPORT INFORMATION
  Report Type: Report from Study
  Country: US (occurrence: US)
  Receive Date: 20140813
  Receipt Date: 20160407
  Transmission Date: 20160815
  Serious: Yes (Other)
  Sender: FDA-Public Use
  Company Number: US-SA-2014SA071372

PATIENT
  Age: 45 Year
  Sex: Female

DRUGS (3)
  1. AUBAGIO [Suspect]
     Active Substance: TERIFLUNOMIDE
     Indication: MULTIPLE SCLEROSIS
     Route: 048
     Dates: start: 20141123
  2. AUBAGIO [Suspect]
     Active Substance: TERIFLUNOMIDE
     Indication: MULTIPLE SCLEROSIS
     Route: 048
     Dates: start: 20140419, end: 20140611
  3. AUBAGIO [Suspect]
     Active Substance: TERIFLUNOMIDE
     Indication: MULTIPLE SCLEROSIS
     Route: 065
     Dates: end: 20141001

REACTIONS (12)
  - Paraesthesia [Unknown]
  - Abasia [Not Recovered/Not Resolved]
  - Anaemia [Not Recovered/Not Resolved]
  - Somnolence [Unknown]
  - Hypoaesthesia [Unknown]
  - Fatigue [Recovering/Resolving]
  - Burning sensation [Unknown]
  - Intervertebral disc disorder [Unknown]
  - Weight gain poor [Unknown]
  - Alopecia [Unknown]
  - Unevaluable event [Unknown]
  - Drug dose omission [Unknown]
